FAERS Safety Report 11078726 (Version 1)
Quarter: 2015Q2

REPORT INFORMATION
  Report Type: Spontaneous
  Country: US (occurrence: US)
  Receive Date: 20150430
  Receipt Date: 20150430
  Transmission Date: 20150821
  Serious: No
  Sender: FDA-Public Use
  Company Number: US-BIOGENIDEC-2015BI055831

PATIENT
  Age: 40 Year
  Sex: Male

DRUGS (7)
  1. TECFIDERA [Suspect]
     Active Substance: DIMETHYL FUMARATE
     Indication: MULTIPLE SCLEROSIS
     Route: 048
  2. SIMVASTATIN. [Concomitant]
     Active Substance: SIMVASTATIN
  3. TOPIRAMATE. [Concomitant]
     Active Substance: TOPIRAMATE
  4. WELLBUTRIN [Concomitant]
     Active Substance: BUPROPION HYDROCHLORIDE
  5. BUTALBITAL-APAP-CAFFEINE [Concomitant]
  6. FLUOXETINE HCI [Concomitant]
     Active Substance: FLUOXETINE HYDROCHLORIDE
  7. ZYRTEC ALLERGY [Concomitant]

REACTIONS (2)
  - Lumbar puncture abnormal [Not Recovered/Not Resolved]
  - Nuclear magnetic resonance imaging abnormal [Not Recovered/Not Resolved]
